FAERS Safety Report 4283889-9 (Version None)
Quarter: 2004Q1

REPORT INFORMATION
  Report Type: 
  Country: None (occurrence: None)
  Receive Date: 20040130
  Receipt Date: 20040120
  Transmission Date: 20041129
  Serious: Yes (Hospitalization)
  Sender: FDA-Public Use
  Company Number: OMPQ-PR-0312S-0947 (1)

PATIENT
  Age: 46 Year
  Sex: Male

DRUGS (3)
  1. OMNIPAQUE 140 [Suspect]
     Dosage: SINGLE DOSE, I.A.
     Route: 013
     Dates: start: 20031201, end: 20031201
  2. ASPIRIN [Concomitant]
  3. METOPROLOL [Concomitant]

REACTIONS (2)
  - AGGRESSION [None]
  - ENCEPHALOPATHY [None]
